FAERS Safety Report 12318536 (Version 3)
Quarter: 2016Q2

REPORT INFORMATION
  Report Type: Report from Study
  Country: JP (occurrence: JP)
  Receive Date: 20160429
  Receipt Date: 20160620
  Transmission Date: 20160815
  Serious: Yes (Death, Life-Threatening, Disabling, Other)
  Sender: FDA-Public Use
  Company Number: JP-BRISTOL-MYERS SQUIBB COMPANY-BMS-2016-033061

PATIENT
  Age: 72 Year
  Sex: Male

DRUGS (5)
  1. NIVOLUMAB [Suspect]
     Active Substance: NIVOLUMAB
     Indication: NON-SMALL CELL LUNG CANCER
     Dosage: 3 MG/KG, UNK
     Route: 041
     Dates: start: 20160329, end: 20160329
  2. MONOAMMONIUM GLYCYRRHIZINATE [Concomitant]
     Active Substance: AMMONIUM GLYCYRRHIZATE
     Indication: PRODUCT USED FOR UNKNOWN INDICATION
     Dosage: UNK
     Route: 065
     Dates: start: 20160407
  3. HYDROCORTISONE. [Concomitant]
     Active Substance: HYDROCORTISONE
     Indication: PRODUCT USED FOR UNKNOWN INDICATION
     Route: 065
  4. NIVOLUMAB [Suspect]
     Active Substance: NIVOLUMAB
     Dosage: 2.4 MG/KG, UNK
     Route: 041
     Dates: start: 20160413, end: 20160413
  5. LEVOTHYROXINE. [Concomitant]
     Active Substance: LEVOTHYROXINE
     Indication: PRODUCT USED FOR UNKNOWN INDICATION
     Dosage: UNK
     Route: 065
     Dates: start: 20160407

REACTIONS (6)
  - Underdose [Unknown]
  - Large intestinal haemorrhage [Not Recovered/Not Resolved]
  - Hypothyroidism [Recovered/Resolved]
  - Adrenal insufficiency [Recovered/Resolved]
  - Malignant neoplasm progression [Fatal]
  - Hepatic function abnormal [Not Recovered/Not Resolved]

NARRATIVE: CASE EVENT DATE: 20160407
